FAERS Safety Report 7500802-9 (Version None)
Quarter: 2011Q2

REPORT INFORMATION
  Report Type: 
  Country: None (occurrence: None)
  Receive Date: 20110524
  Receipt Date: 20110523
  Transmission Date: 20111010
  Serious: Yes (Hospitalization)
  Sender: FDA-Public Use
  Company Number: A0769319A

PATIENT
  Age: 55 Year
  Sex: Male

DRUGS (3)
  1. MULTIPLE MEDICATIONS [Concomitant]
  2. AVANDIA [Suspect]
     Route: 048
     Dates: start: 20040101, end: 20090501
  3. PLAVIX [Concomitant]

REACTIONS (10)
  - JOINT SWELLING [None]
  - CHEST DISCOMFORT [None]
  - WEIGHT INCREASED [None]
  - MUSCULOSKELETAL PAIN [None]
  - CEREBROVASCULAR ACCIDENT [None]
  - ADVERSE EVENT [None]
  - INSOMNIA [None]
  - CARDIAC DISORDER [None]
  - CARDIOVASCULAR DISORDER [None]
  - DYSPNOEA [None]
